FAERS Safety Report 10205922 (Version 1)
Quarter: 2014Q2

REPORT INFORMATION
  Report Type: Spontaneous
  Country: US (occurrence: US)
  Receive Date: 20140530
  Receipt Date: 20140530
  Transmission Date: 20141212
  Serious: No
  Sender: FDA-Public Use
  Company Number: US-009507513-1405USA008004

PATIENT
  Age: 56 Year
  Sex: Female

DRUGS (1)
  1. PEGINTRON [Suspect]
     Dosage: 0.4 ML, QW
     Route: 058

REACTIONS (3)
  - Oropharyngeal pain [Not Recovered/Not Resolved]
  - Drug dose omission [Unknown]
  - Needle issue [Unknown]
